FAERS Safety Report 8032548-5 (Version None)
Quarter: 2011Q4

REPORT INFORMATION
  Report Type: 
  Country: None (occurrence: None)
  Receive Date: 20111228
  Receipt Date: 20111221
  Transmission Date: 20120403
  Serious: Yes (Death, Life-Threatening, Hospitalization)
  Sender: FDA-Public Use
  Company Number: 2011SP035464

PATIENT
  Age: 78 Year
  Sex: Female
  Weight: 70 kg

DRUGS (8)
  1. BELOK ZOK MITE [Concomitant]
  2. HEPARIN [Concomitant]
  3. TEMOZOLOMIDE [Suspect]
     Indication: GLIOBLASTOMA
     Dosage: 140 MG;QD;PO
     Route: 048
     Dates: start: 20101116
  4. DEXAMETHASONE SODIUM PHOSPHATE [Concomitant]
  5. MOVIPREP [Concomitant]
  6. ASPIRIN [Concomitant]
  7. PANTOPRAZOLE SODIUM [Concomitant]
  8. ZOFRAN [Concomitant]

REACTIONS (8)
  - GENERAL PHYSICAL HEALTH DETERIORATION [None]
  - CONVULSION [None]
  - NEOPLASM PROGRESSION [None]
  - GLIOBLASTOMA [None]
  - PULMONARY EMBOLISM [None]
  - OEDEMA PERIPHERAL [None]
  - THROMBOCYTOPENIA [None]
  - DISTURBANCE IN ATTENTION [None]
